FAERS Safety Report 13598660 (Version 2)
Quarter: 2017Q3

REPORT INFORMATION
  Report Type: Spontaneous
  Country: US (occurrence: US)
  Receive Date: 20170531
  Receipt Date: 20170829
  Transmission Date: 20171127
  Serious: Yes (Hospitalization)
  Sender: FDA-Public Use
  Company Number: US-PFIZER INC-2017235688

PATIENT
  Age: 61 Year
  Sex: Female
  Weight: 96 kg

DRUGS (1)
  1. FENTANYL. [Suspect]
     Active Substance: FENTANYL
     Indication: BACK PAIN
     Dosage: UNK
     Dates: start: 2004

REACTIONS (5)
  - Seizure [Recovered/Resolved]
  - Coma [Recovered/Resolved]
  - Diabetes mellitus [Not Recovered/Not Resolved]
  - Migraine with aura [Recovered/Resolved]
  - Migraine [Recovered/Resolved]
